FAERS Safety Report 21352902 (Version 1)
Quarter: 2022Q3

REPORT INFORMATION
  Report Type: Spontaneous
  Country: US (occurrence: US)
  Receive Date: 20220920
  Receipt Date: 20220920
  Transmission Date: 20221027
  Serious: No
  Sender: FDA-Public Use
  Company Number: US-BRISTOL-MYERS SQUIBB COMPANY-2022-100392

PATIENT
  Age: 37 Year
  Sex: Female

DRUGS (1)
  1. ELIQUIS [Suspect]
     Active Substance: APIXABAN
     Indication: Deep vein thrombosis
     Route: 048
     Dates: start: 20220824

REACTIONS (8)
  - Rash [Unknown]
  - Skin disorder [Unknown]
  - Erythema [Unknown]
  - Pruritus [Unknown]
  - Feeling hot [Unknown]
  - Fatigue [Unknown]
  - Somnolence [Unknown]
  - Treatment noncompliance [Unknown]
